FAERS Safety Report 6371925-5 (Version None)
Quarter: 2009Q3

REPORT INFORMATION
  Report Type: 
  Country: None (occurrence: None)
  Receive Date: 20090916
  Receipt Date: 20090916
  Transmission Date: 20100115
  Serious: Yes (Hospitalization)
  Sender: FDA-Public Use
  Company Number: None

PATIENT
  Age: 73 Year
  Sex: Male
  Weight: 102 kg

DRUGS (2)
  1. ASPIRIN [Suspect]
     Dosage: 325 MG EVERY DAY PO
     Route: 048
     Dates: start: 20090626, end: 20090725
  2. MELOXICAM [Suspect]
     Dosage: 15 MG EVERY DAY PO
     Route: 048
     Dates: start: 20081208, end: 20090725

REACTIONS (7)
  - GASTRIC HAEMORRHAGE [None]
  - HYPOGLYCAEMIA [None]
  - MELAENA [None]
  - NAUSEA [None]
  - RENAL FAILURE ACUTE [None]
  - UNRESPONSIVE TO STIMULI [None]
  - VOMITING [None]
